FAERS Safety Report 24366292 (Version 1)
Quarter: 2024Q3

REPORT INFORMATION
  Report Type: Spontaneous
  Country: US (occurrence: None)
  Receive Date: 20240925
  Receipt Date: 20240925
  Transmission Date: 20241017
  Serious: Yes (Death, Life-Threatening)
  Sender: Public
  Company Number: None

PATIENT
  Sex: 0

DRUGS (2)
  1. ZODEX [Suspect]
     Active Substance: DEXAMETHASONE
     Indication: Headache
  2. ZODEX [Suspect]
     Active Substance: DEXAMETHASONE
     Indication: Brain neoplasm

REACTIONS (2)
  - Suicidal ideation [None]
  - Completed suicide [None]
